FAERS Safety Report 7346919-3 (Version None)
Quarter: 2011Q1

REPORT INFORMATION
  Report Type: 
  Country: None (occurrence: None)
  Receive Date: 20110309
  Receipt Date: 20110309
  Transmission Date: 20110831
  Serious: Yes (Other)
  Sender: FDA-Public Use
  Company Number: None

PATIENT
  Age: 47 Year
  Sex: Female
  Weight: 71.2147 kg

DRUGS (1)
  1. TRIAD ALCOHOL PREP PADS [Suspect]

REACTIONS (4)
  - MOTION SICKNESS [None]
  - OCULAR HYPERAEMIA [None]
  - EYE PAIN [None]
  - BACILLUS INFECTION [None]
